FAERS Safety Report 8425195-4 (Version None)
Quarter: 2012Q2

REPORT INFORMATION
  Report Type: 
  Country: None (occurrence: None)
  Receive Date: 20120611
  Receipt Date: 20120601
  Transmission Date: 20120825
  Serious: Yes (Other)
  Sender: FDA-Public Use
  Company Number: US-US-EMD SERONO, INC.-7133440

PATIENT
  Sex: Female
  Weight: 61 kg

DRUGS (5)
  1. LISINOPRIL [Concomitant]
     Indication: HYPERTENSION
     Dates: start: 20110601, end: 20120529
  2. MAXZIDE [Concomitant]
     Indication: HYPERTENSION
     Dates: start: 20120501
  3. REBIF [Suspect]
     Indication: MULTIPLE SCLEROSIS
     Route: 058
     Dates: start: 20070226
  4. HPV [Concomitant]
     Indication: FLUID RETENTION
  5. CATAPRES [Concomitant]
     Indication: HYPERTENSION

REACTIONS (5)
  - INFLUENZA LIKE ILLNESS [None]
  - BLOOD PRESSURE FLUCTUATION [None]
  - MULTIPLE SCLEROSIS RELAPSE [None]
  - INSOMNIA [None]
  - CATHETERISATION CARDIAC [None]
